FAERS Safety Report 9045764 (Version 2)
Quarter: 2013Q1

REPORT INFORMATION
  Report Type: Report from Study
  Country: US (occurrence: US)
  Receive Date: 20130131
  Receipt Date: 20130213
  Transmission Date: 20140127
  Serious: Yes (Hospitalization, Other)
  Sender: FDA-Public Use
  Company Number: US-ABBOTT-12P-163-1009975-00

PATIENT
  Age: 22 None
  Sex: Female
  Weight: 93.07 kg

DRUGS (6)
  1. HUMIRA [Suspect]
     Indication: CROHN^S DISEASE
     Route: 058
     Dates: start: 20090508, end: 20111214
  2. HUMIRA [Suspect]
     Dates: start: 20121115
  3. PURINETHOL [Concomitant]
     Indication: CROHN^S DISEASE
  4. LIALDA [Concomitant]
     Indication: CROHN^S DISEASE
  5. 6MP [Concomitant]
     Indication: CROHN^S DISEASE
  6. ENTOCORT [Concomitant]
     Indication: CROHN^S DISEASE

REACTIONS (7)
  - Pyrexia [Recovering/Resolving]
  - Vomiting [Recovered/Resolved]
  - Pneumonia [Recovered/Resolved]
  - Abdominal pain [Recovering/Resolving]
  - Diarrhoea [Recovering/Resolving]
  - Dyspnoea [Recovering/Resolving]
  - Chest discomfort [Recovering/Resolving]
